FAERS Safety Report 18581431 (Version 1)
Quarter: 2020Q4

REPORT INFORMATION
  Report Type: Spontaneous
  Country: FR (occurrence: FR)
  Receive Date: 20201204
  Receipt Date: 20201204
  Transmission Date: 20210114
  Serious: Yes (Hospitalization)
  Sender: FDA-Public Use
  Company Number: FR-MYLANLABS-2020M1099525

PATIENT
  Age: 54 Year
  Sex: Female

DRUGS (7)
  1. CALCIUM [Concomitant]
     Active Substance: CALCIUM
     Indication: SUPPLEMENTATION THERAPY
     Route: 065
  2. VITAMIN D                          /07503901/ [Concomitant]
     Active Substance: VITAMIN D NOS
     Indication: SUPPLEMENTATION THERAPY
     Route: 065
  3. RISEDRONATE [Suspect]
     Active Substance: RISEDRONATE SODIUM
     Indication: PROPHYLAXIS
     Dosage: UNK
     Route: 065
     Dates: start: 201812
  4. METHOTREXATE. [Concomitant]
     Active Substance: METHOTREXATE
     Indication: NECROTISING MYOSITIS
  5. PREDNISONE. [Concomitant]
     Active Substance: PREDNISONE
     Indication: HUMAN T-CELL LYMPHOTROPIC VIRUS TYPE I INFECTION
     Dosage: 10 MILLIGRAM, QD
     Route: 065
  6. PREDNISONE. [Concomitant]
     Active Substance: PREDNISONE
     Indication: NECROTISING MYOSITIS
     Dosage: 60 MILLIGRAM, QD
     Route: 065
  7. METHOTREXATE. [Concomitant]
     Active Substance: METHOTREXATE
     Indication: HUMAN T-CELL LYMPHOTROPIC VIRUS TYPE I INFECTION
     Dosage: 25 MILLIGRAM, QW
     Route: 065

REACTIONS (5)
  - Acute phase reaction [Recovering/Resolving]
  - Rhabdomyolysis [Recovering/Resolving]
  - Condition aggravated [Recovering/Resolving]
  - Gait inability [Recovering/Resolving]
  - Myositis [Recovering/Resolving]

NARRATIVE: CASE EVENT DATE: 2019
